FAERS Safety Report 4673375-6 (Version None)
Quarter: 2005Q2

REPORT INFORMATION
  Report Type: 
  Country: None (occurrence: None)
  Receive Date: 20050523
  Receipt Date: 20050511
  Transmission Date: 20051028
  Serious: Yes (Other)
  Sender: FDA-Public Use
  Company Number: JP-2005-007570

PATIENT

DRUGS (1)
  1. FLUDARA [Suspect]
     Indication: MANTLE CELL LYMPHOMA
     Dates: start: 20020101

REACTIONS (1)
  - ACUTE MYELOID LEUKAEMIA [None]
